FAERS Safety Report 7666834-5 (Version None)
Quarter: 2011Q3

REPORT INFORMATION
  Report Type: 
  Country: None (occurrence: None)
  Receive Date: 20110806
  Receipt Date: 20110531
  Transmission Date: 20111222
  Serious: No
  Sender: FDA-Public Use
  Company Number: US-ABBOTT-11P-163-0730290-00

PATIENT
  Sex: Male
  Weight: 81.266 kg

DRUGS (5)
  1. NIASPAN [Suspect]
     Dosage: 1 IN 1, AT HOUR OF SLEEP
     Route: 048
  2. ASPIRIN [Concomitant]
     Indication: PRODUCT USED FOR UNKNOWN INDICATION
     Dosage: 1 IN 1 MORNING
     Route: 048
  3. NIASPAN [Suspect]
     Indication: HIGH DENSITY LIPOPROTEIN
     Dosage: 1 IN 1, AT HOUR OF SLEEP
     Route: 048
  4. SIMVASTATIN [Concomitant]
     Indication: BLOOD CHOLESTEROL
  5. UNKNOWN BLOOD PRESSURE MEDICATION [Concomitant]
     Indication: HYPERTENSION

REACTIONS (3)
  - MIDDLE INSOMNIA [None]
  - GENERALISED ERYTHEMA [None]
  - FLUSHING [None]
